FAERS Safety Report 5631741-6 (Version None)
Quarter: 2008Q1

REPORT INFORMATION
  Report Type: 
  Country: None (occurrence: None)
  Receive Date: 20080213
  Receipt Date: 20080201
  Transmission Date: 20080703
  Serious: No
  Sender: FDA-Public Use
  Company Number: 2008-171044-NL

PATIENT
  Age: 19 Year
  Sex: Female

DRUGS (1)
  1. ETONOGESTREL [Suspect]
     Dosage: DF
     Dates: start: 20040501

REACTIONS (4)
  - LEUKAEMIA [None]
  - MENSTRUATION IRREGULAR [None]
  - MOOD SWINGS [None]
  - PREMENSTRUAL SYNDROME [None]
